FAERS Safety Report 12439720 (Version 1)
Quarter: 2016Q2

REPORT INFORMATION
  Report Type: Spontaneous
  Country: GR (occurrence: GR)
  Receive Date: 20160606
  Receipt Date: 20160606
  Transmission Date: 20160815
  Serious: Yes (Other)
  Sender: FDA-Public Use
  Company Number: GR-PFIZER INC-2016285005

PATIENT
  Age: 70 Year
  Sex: Male

DRUGS (2)
  1. LIPITOR [Suspect]
     Active Substance: ATORVASTATIN CALCIUM
     Indication: BLOOD CHOLESTEROL
     Dosage: 10 MG, UNK
     Dates: start: 2015
  2. VIBRAMYCIN [Suspect]
     Active Substance: DOXYCYCLINE
     Indication: INFECTION
     Dosage: UNK

REACTIONS (10)
  - Choking [Recovered/Resolved]
  - Blood thyroid stimulating hormone increased [Recovered/Resolved]
  - Drug ineffective [Unknown]
  - Stress [Recovered/Resolved]
  - Infection [Unknown]
  - Lip haemorrhage [Recovered/Resolved]
  - Lip dry [Recovered/Resolved]
  - Haemoptysis [Recovered/Resolved]
  - Eye disorder [Recovered/Resolved]
  - Lip pain [Unknown]

NARRATIVE: CASE EVENT DATE: 2016
